FAERS Safety Report 7026936-3 (Version None)
Quarter: 2010Q4

REPORT INFORMATION
  Report Type: 
  Country: None (occurrence: None)
  Receive Date: 20101004
  Receipt Date: 20100923
  Transmission Date: 20110411
  Serious: Yes (Hospitalization)
  Sender: FDA-Public Use
  Company Number: B0677183A

PATIENT

DRUGS (8)
  1. AUGMENTIN '125' [Suspect]
     Indication: ERYSIPELAS
     Route: 042
     Dates: start: 20100905, end: 20100907
  2. ISOPTIN SR [Concomitant]
  3. INDAP [Concomitant]
  4. LOSARTAN POTASSIUM [Concomitant]
  5. DITHIADEN [Concomitant]
  6. CADUET [Concomitant]
  7. THEOPLUS [Concomitant]
  8. HELICID [Concomitant]

REACTIONS (2)
  - DRUG ERUPTION [None]
  - PRURITUS [None]
